FAERS Safety Report 18083442 (Version 1)
Quarter: 2020Q3

REPORT INFORMATION
  Report Type: Spontaneous
  Country: DK (occurrence: DK)
  Receive Date: 20200729
  Receipt Date: 20200729
  Transmission Date: 20201103
  Serious: Yes (Other)
  Sender: FDA-Public Use
  Company Number: DK-TEVA-2020-DK-1806184

PATIENT
  Age: 55 Year
  Sex: Female

DRUGS (3)
  1. PREDNISOLONE. [Suspect]
     Active Substance: PREDNISOLONE
     Indication: ARTHRALGIA
     Dosage: STRENGTH: UNKNOWN; DOSE: UNKNOWN.?ROUTE: BOTH ORAL AND INJECTION. ?DURATION OF TREATMENTS UNK.
     Dates: start: 20090612
  2. ALLOPURINOL ^ORION^ [Concomitant]
     Indication: GOUTY ARTHRITIS
     Route: 048
     Dates: start: 20181126
  3. COLCHICIN ^TIOFARMA^ [Concomitant]
     Indication: ARTHRITIS
     Route: 048
     Dates: start: 20190124, end: 20190628

REACTIONS (1)
  - Type 2 diabetes mellitus [Not Recovered/Not Resolved]

NARRATIVE: CASE EVENT DATE: 2019
